FAERS Safety Report 10237778 (Version 1)
Quarter: 2014Q2

REPORT INFORMATION
  Report Type: Spontaneous
  Country: FR (occurrence: FR)
  Receive Date: 20140616
  Receipt Date: 20140616
  Transmission Date: 20141212
  Serious: Yes (Other)
  Sender: FDA-Public Use
  Company Number: FR-009507513-1406FRA005555

PATIENT
  Sex: Female

DRUGS (3)
  1. DIPROSONE [Suspect]
     Indication: ECZEMA
     Route: 003
  2. DERMOVAL [Suspect]
     Indication: ECZEMA
     Route: 003
  3. CYTEAL [Suspect]
     Indication: ECZEMA
     Route: 003

REACTIONS (1)
  - Dermatitis allergic [Unknown]
